FAERS Safety Report 24992115 (Version 1)
Quarter: 2025Q1

REPORT INFORMATION
  Report Type: Spontaneous
  Country: CN (occurrence: CN)
  Receive Date: 20250220
  Receipt Date: 20250220
  Transmission Date: 20250409
  Serious: Yes (Other)
  Sender: MERCK SHARP & DOHME LLC
  Company Number: CN-009507513-2255092

PATIENT
  Age: 74 Year
  Sex: Female
  Weight: 60 kg

DRUGS (3)
  1. KEYTRUDA [Suspect]
     Active Substance: PEMBROLIZUMAB
     Dosage: 200 MG, ONCE
     Route: 042
     Dates: start: 20250117, end: 20250117
  2. PACLITAXEL [Suspect]
     Active Substance: PACLITAXEL
     Indication: Squamous cell carcinoma of the vulva
     Dosage: 350 MG, ONCE
     Route: 042
     Dates: start: 20250117, end: 20250117
  3. CISPLATIN [Suspect]
     Active Substance: CISPLATIN
     Indication: Squamous cell carcinoma of the vulva
     Dosage: 45 MG, ONCE (CONFLICTING INFORMATION, ALSO REPORTED AS (D1-D2))
     Dates: start: 20250117, end: 20250118

REACTIONS (4)
  - Leukopenia [Recovering/Resolving]
  - Haemoglobin abnormal [Recovering/Resolving]
  - Neutropenia [Recovering/Resolving]
  - Platelet count abnormal [Recovering/Resolving]

NARRATIVE: CASE EVENT DATE: 20250123
